FAERS Safety Report 9612484 (Version 2)
Quarter: 2013Q4

REPORT INFORMATION
  Report Type: Spontaneous
  Country: IT (occurrence: IT)
  Receive Date: 20131010
  Receipt Date: 20131216
  Transmission Date: 20140711
  Serious: Yes (Hospitalization)
  Sender: FDA-Public Use
  Company Number: IT-SA-2013SA100103

PATIENT
  Age: 81 Year
  Sex: Male

DRUGS (5)
  1. RAMIPRIL [Suspect]
     Indication: HYPERTENSION
     Route: 048
     Dates: start: 20120930, end: 20130917
  2. LASIX [Suspect]
     Indication: HYPERTENSION
     Route: 048
     Dates: start: 20120930, end: 20130917
  3. NORVASC [Suspect]
     Indication: HYPERTENSION
     Route: 048
     Dates: start: 20120930, end: 20130917
  4. CARDICOR [Concomitant]
     Indication: HYPERTENSION
  5. ALDACTONE [Concomitant]

REACTIONS (1)
  - Syncope [Recovering/Resolving]
